FAERS Safety Report 9346617 (Version 5)
Quarter: 2014Q1

REPORT INFORMATION
  Report Type: Spontaneous
  Country: US (occurrence: US)
  Receive Date: 20130613
  Receipt Date: 20140113
  Transmission Date: 20141002
  Serious: Yes (Other)
  Sender: FDA-Public Use
  Company Number: US-PFIZER INC-2013177259

PATIENT
  Age: 64 Year
  Sex: Female
  Weight: 48.53 kg

DRUGS (11)
  1. LYRICA [Suspect]
     Indication: FIBROMYALGIA
     Dosage: 50 MG, 2X/DAY
     Route: 048
  2. LYRICA [Suspect]
     Indication: BACK PAIN
     Dosage: 150MG DAILY (50 MG THREE TIMES DAILY)
     Route: 048
  3. LYRICA [Suspect]
     Indication: PAIN
  4. ZOLOFT [Suspect]
     Indication: DEPRESSION
     Dosage: 100 MG, 1X/DAY
     Route: 048
  5. ZOLOFT [Suspect]
     Dosage: 50 MG, DAILY
  6. PREMARIN [Suspect]
     Indication: ATROPHIC VULVOVAGINITIS
     Dosage: 1.25 MG, 1X/DAY
     Route: 048
     Dates: start: 1997
  7. PREMARIN [Suspect]
     Indication: HYSTERECTOMY
     Dosage: 0.9 MG, 1X/DAY
     Route: 048
  8. PREMARIN [Suspect]
     Indication: MENOPAUSE
  9. LIPITOR [Suspect]
     Indication: BLOOD CHOLESTEROL INCREASED
     Dosage: 20 MG, 1X/DAY
     Route: 048
  10. INDERAL-LA [Concomitant]
     Dosage: UNK
  11. MOBIC [Concomitant]
     Dosage: UNK

REACTIONS (12)
  - Carpal tunnel syndrome [Unknown]
  - Arthritis [Unknown]
  - Viral infection [Recovering/Resolving]
  - Gastroenteritis viral [Unknown]
  - Migraine [Unknown]
  - Drug intolerance [Unknown]
  - Nasopharyngitis [Unknown]
  - Oropharyngeal pain [Unknown]
  - Dizziness [Unknown]
  - Feeling abnormal [Unknown]
  - Malaise [Unknown]
  - Influenza [Unknown]
